FAERS Safety Report 7353171-1 (Version None)
Quarter: 2011Q1

REPORT INFORMATION
  Report Type: 
  Country: None (occurrence: None)
  Receive Date: 20110310
  Receipt Date: 20110310
  Transmission Date: 20110831
  Serious: No
  Sender: FDA-Public Use
  Company Number: None

PATIENT
  Sex: Male
  Weight: 90 kg

DRUGS (1)
  1. FLEBOGAMMA [Suspect]
     Indication: NON-HODGKIN'S LYMPHOMA
     Dosage: 40,000MG IV
     Route: 042
     Dates: start: 20101201, end: 20110302

REACTIONS (3)
  - BLOOD PRESSURE INCREASED [None]
  - CHILLS [None]
  - INFUSION RELATED REACTION [None]
